FAERS Safety Report 7347388-X (Version None)
Quarter: 2011Q1

REPORT INFORMATION
  Report Type: 
  Country: None (occurrence: None)
  Receive Date: 20110311
  Receipt Date: 20110308
  Transmission Date: 20110831
  Serious: Yes (Death, Other)
  Sender: FDA-Public Use
  Company Number: ES-NAPPMUNDI-DEU-2010-0006834

PATIENT
  Age: 69 Year
  Sex: Male

DRUGS (2)
  1. JAVLOR [Suspect]
     Indication: TRANSITIONAL CELL CARCINOMA
     Dosage: 418 MG, DAILY
     Dates: start: 20100722, end: 20100722
  2. MST 10 CONTINUS, COMPRIMIDOS DE 10 MG [Suspect]
     Indication: CANCER PAIN
     Dosage: 20 MG, BID
     Route: 048
     Dates: start: 20100101

REACTIONS (2)
  - DEATH [None]
  - ILEUS PARALYTIC [None]
